FAERS Safety Report 4829795-X (Version None)
Quarter: 2005Q4

REPORT INFORMATION
  Report Type: 
  Country: None (occurrence: None)
  Receive Date: 20051028
  Receipt Date: 20050808
  Transmission Date: 20060501
  Serious: No
  Sender: FDA-Public Use
  Company Number: COT_0124_2005

PATIENT
  Age: 77 Year
  Sex: Male
  Weight: 102.5129 kg

DRUGS (11)
  1. VENTAVIS [Suspect]
     Indication: PULMONARY HYPERTENSION
     Dosage: 5 MCG 6XD IH
     Route: 055
     Dates: end: 20050715
  2. FUROSEMIDE [Concomitant]
  3. MIRAPEX [Concomitant]
  4. SPIRONOLACTONE [Concomitant]
  5. NORVASC [Concomitant]
  6. VITORIN [Concomitant]
  7. COUMADIN [Concomitant]
  8. TOPROL-XL [Concomitant]
  9. QUININE SULFATE [Concomitant]
  10. ALLOPURINOL [Concomitant]
  11. OXYGEN [Concomitant]

REACTIONS (6)
  - CHEST DISCOMFORT [None]
  - COUGH [None]
  - DYSPNOEA [None]
  - HEADACHE [None]
  - OEDEMA PERIPHERAL [None]
  - RESPIRATORY TRACT IRRITATION [None]
